FAERS Safety Report 23025709 (Version 2)
Quarter: 2023Q4

REPORT INFORMATION
  Report Type: Spontaneous
  Country: CN (occurrence: CN)
  Receive Date: 20231004
  Receipt Date: 20231026
  Transmission Date: 20240110
  Serious: Yes (Hospitalization)
  Sender: FDA-Public Use
  Company Number: CN-BoehringerIngelheim-2023-BI-263973

PATIENT
  Age: 66 Year
  Sex: Male
  Weight: 65.0 kg

DRUGS (2)
  1. OFEV [Suspect]
     Active Substance: NINTEDANIB
     Indication: Pulmonary fibrosis
     Route: 048
     Dates: start: 20230615, end: 20230924
  2. METHYLPREDNISOLONE [Concomitant]
     Active Substance: METHYLPREDNISOLONE
     Indication: Pulmonary fibrosis
     Dosage: 3 DOSAGE FORM
     Route: 048
     Dates: start: 20230615, end: 20230924

REACTIONS (9)
  - Decreased appetite [Recovering/Resolving]
  - Urine analysis abnormal [Recovering/Resolving]
  - Diarrhoea [Recovering/Resolving]
  - Poor quality sleep [Recovering/Resolving]
  - Abdominal pain [Recovering/Resolving]
  - Abdominal distension [Recovering/Resolving]
  - Gastrooesophageal reflux disease [Recovering/Resolving]
  - Dyspepsia [Recovering/Resolving]
  - Enteritis [Unknown]

NARRATIVE: CASE EVENT DATE: 20230622
